FAERS Safety Report 20845809 (Version 1)
Quarter: 2022Q2

REPORT INFORMATION
  Report Type: Spontaneous
  Country: US (occurrence: US)
  Receive Date: 20220518
  Receipt Date: 20220518
  Transmission Date: 20220721
  Serious: No
  Sender: FDA-Public Use
  Company Number: US-BAYER-2022A067478

PATIENT
  Sex: Female

DRUGS (1)
  1. ALEVE [Suspect]
     Active Substance: NAPROXEN SODIUM
     Dosage: 20 TABLETS IN 1 DAY, TABLET/CAPLET/GELCAP
     Route: 048
     Dates: start: 20220509

REACTIONS (2)
  - Vomiting [Unknown]
  - Overdose [Unknown]

NARRATIVE: CASE EVENT DATE: 20220509
